FAERS Safety Report 24629134 (Version 2)
Quarter: 2025Q1

REPORT INFORMATION
  Report Type: Spontaneous
  Country: US (occurrence: US)
  Receive Date: 20241118
  Receipt Date: 20250220
  Transmission Date: 20250408
  Serious: No
  Sender: ARCUTIS
  Company Number: US-ARCUTIS BIOTHERAPEUTICS INC-2024AER000308

PATIENT

DRUGS (3)
  1. ZORYVE [Suspect]
     Active Substance: ROFLUMILAST
     Indication: Product used for unknown indication
     Route: 061
     Dates: end: 202409
  2. IMBRUVICA [Concomitant]
     Active Substance: IBRUTINIB
     Indication: Chronic lymphocytic leukaemia
  3. SYNTHROID [Concomitant]
     Active Substance: LEVOTHYROXINE SODIUM
     Indication: Thyroid disorder

REACTIONS (2)
  - Skin discolouration [Recovered/Resolved]
  - Inappropriate schedule of product administration [Unknown]

NARRATIVE: CASE EVENT DATE: 20240902
